FAERS Safety Report 22095728 (Version 2)
Quarter: 2023Q1

REPORT INFORMATION
  Report Type: Spontaneous
  Country: US (occurrence: US)
  Receive Date: 20230314
  Receipt Date: 20230315
  Transmission Date: 20230417
  Serious: Yes (Other)
  Sender: FDA-Public Use
  Company Number: US-PFIZER INC-PV202300045885

PATIENT
  Age: 52 Year
  Sex: Female

DRUGS (1)
  1. METHYLPREDNISOLONE SODIUM SUCCINATE [Suspect]
     Active Substance: METHYLPREDNISOLONE SODIUM SUCCINATE
     Indication: Radiculopathy
     Dosage: 120 MG IN 10 ML OF PRESERVATIVE-FREE 0.9% NACL
     Route: 008

REACTIONS (2)
  - Herpes zoster [Recovered/Resolved]
  - Off label use [Unknown]
